FAERS Safety Report 25104096 (Version 1)
Quarter: 2025Q1

REPORT INFORMATION
  Report Type: Other
  Country: CA (occurrence: CA)
  Receive Date: 20250321
  Receipt Date: 20250321
  Transmission Date: 20250409
  Serious: Yes (Hospitalization)
  Sender: TOLMAR
  Company Number: CA-TOLMAR, INC.-25CA057797

PATIENT
  Sex: Male

DRUGS (1)
  1. LEUPROLIDE ACETATE [Suspect]
     Active Substance: LEUPROLIDE ACETATE
     Indication: Benign prostatic hyperplasia
     Dosage: 22.5 MILLIGRAM, Q 3 MONTH
     Route: 030

REACTIONS (1)
  - Paraplegia [Unknown]
